FAERS Safety Report 4692422-9 (Version None)
Quarter: 2005Q2

REPORT INFORMATION
  Report Type: 
  Country: None (occurrence: None)
  Receive Date: 20050616
  Receipt Date: 20050601
  Transmission Date: 20051028
  Serious: Yes (Other)
  Sender: FDA-Public Use
  Company Number: DSA_26484_2005

PATIENT
  Age: 23 Year
  Sex: Female
  Weight: 65 kg

DRUGS (1)
  1. ATIVAN [Suspect]
     Indication: DRUG ABUSER
     Dosage: 10 MG ONCE PO
     Route: 048
     Dates: start: 20050520, end: 20050520

REACTIONS (4)
  - DISORIENTATION [None]
  - DYSLALIA [None]
  - MENTAL STATUS CHANGES [None]
  - SELF-MEDICATION [None]
